FAERS Safety Report 7067454-6 (Version None)
Quarter: 2010Q4

REPORT INFORMATION
  Report Type: 
  Country: None (occurrence: None)
  Receive Date: 20101026
  Receipt Date: 20101026
  Transmission Date: 20110411
  Serious: Yes (Death)
  Sender: FDA-Public Use
  Company Number: None

PATIENT
  Sex: Male
  Weight: 97.7 kg

DRUGS (1)
  1. HYDROMORPHONE HCL [Suspect]
     Indication: PAIN
     Dosage: 4 MG Q 4HRS. PRN ORAL
     Route: 048
     Dates: start: 20101011, end: 20101012

REACTIONS (6)
  - COLD SWEAT [None]
  - CONVULSION [None]
  - FOAMING AT MOUTH [None]
  - HEART RATE DECREASED [None]
  - HYPERHIDROSIS [None]
  - HYPOVENTILATION [None]
